FAERS Safety Report 19283904 (Version 1)
Quarter: 2021Q2

REPORT INFORMATION
  Report Type: Spontaneous
  Country: US (occurrence: US)
  Receive Date: 20210521
  Receipt Date: 20210521
  Transmission Date: 20210717
  Serious: Yes (Hospitalization)
  Sender: FDA-Public Use
  Company Number: None

PATIENT
  Age: 12 Year
  Sex: Female
  Weight: 86.6 kg

DRUGS (1)
  1. METHOTREXATE. [Suspect]
     Active Substance: METHOTREXATE
     Dates: end: 20210311

REACTIONS (4)
  - Dizziness [None]
  - Generalised tonic-clonic seizure [None]
  - Unresponsive to stimuli [None]
  - Postictal state [None]

NARRATIVE: CASE EVENT DATE: 20210316
